FAERS Safety Report 15538329 (Version 2)
Quarter: 2019Q1

REPORT INFORMATION
  Report Type: Spontaneous
  Country: PL (occurrence: PL)
  Receive Date: 20181022
  Receipt Date: 20190207
  Transmission Date: 20190417
  Serious: Yes (Hospitalization, Other)
  Sender: FDA-Public Use
  Company Number: PL-MYLANLABS-2018M1078428

PATIENT
  Age: 51 Year
  Sex: Male

DRUGS (9)
  1. FLUOROURACIL. [Suspect]
     Active Substance: FLUOROURACIL
     Indication: TONGUE CARCINOMA STAGE 0
  2. DOCETAXEL. [Suspect]
     Active Substance: DOCETAXEL
     Indication: LYMPHADENOPATHY
  3. FLUOROURACIL. [Suspect]
     Active Substance: FLUOROURACIL
     Indication: TONGUE NEOPLASM
     Dosage: 1800 MG, QD (1800 MG/DAY BY CONTINUOUS INFUSION OVER 96 HOURS)
  4. DOCETAXEL. [Suspect]
     Active Substance: DOCETAXEL
     Indication: TONGUE CARCINOMA STAGE 0
  5. CISPLATIN. [Suspect]
     Active Substance: CISPLATIN
     Indication: LYMPHADENOPATHY
  6. CISPLATIN. [Suspect]
     Active Substance: CISPLATIN
     Indication: TONGUE NEOPLASM
     Dosage: 180 MG, QD (CISPLATIN 180 MG 1 DAY)
  7. FLUOROURACIL. [Suspect]
     Active Substance: FLUOROURACIL
     Indication: LYMPHADENOPATHY
  8. CISPLATIN. [Suspect]
     Active Substance: CISPLATIN
     Indication: TONGUE CARCINOMA STAGE 0
  9. DOCETAXEL. [Suspect]
     Active Substance: DOCETAXEL
     Indication: TONGUE NEOPLASM
     Dosage: 140 MG, QD (140 MG 1 DAY)
     Route: 065

REACTIONS (6)
  - Lymphadenopathy [Unknown]
  - Nephropathy toxic [Unknown]
  - Oliguria [Unknown]
  - Disease progression [Unknown]
  - Acute kidney injury [Recovering/Resolving]
  - Drug ineffective [Unknown]
